FAERS Safety Report 12724911 (Version 2)
Quarter: 2016Q4

REPORT INFORMATION
  Report Type: Report from Study
  Country: GB (occurrence: GB)
  Receive Date: 20160908
  Receipt Date: 20161214
  Transmission Date: 20170207
  Serious: Yes (Other)
  Sender: FDA-Public Use
  Company Number: GB-VIFOR (INTERNATIONAL) INC.-VIT-2016-05039

PATIENT
  Sex: Female

DRUGS (4)
  1. EPOETIN BETA [Suspect]
     Active Substance: ERYTHROPOIETIN
     Indication: NEPHROGENIC ANAEMIA
     Route: 065
  2. MIRCERA [Suspect]
     Active Substance: METHOXY POLYETHYLENE GLYCOL-EPOETIN BETA
     Indication: NEPHROGENIC ANAEMIA
     Route: 065
  3. DARBEPOETIN ALFA [Suspect]
     Active Substance: DARBEPOETIN ALFA
     Indication: NEPHROGENIC ANAEMIA
     Route: 065
  4. EPOETIN ALFA [Suspect]
     Active Substance: ERYTHROPOIETIN
     Indication: NEPHROGENIC ANAEMIA
     Route: 065

REACTIONS (6)
  - Premature delivery [Recovered/Resolved]
  - Maternal exposure during pregnancy [Unknown]
  - Foetal growth restriction [Unknown]
  - Pre-eclampsia [Unknown]
  - Proteinuria [Unknown]
  - Embolism venous [Unknown]
